FAERS Safety Report 10193131 (Version 1)
Quarter: 2014Q2

REPORT INFORMATION
  Report Type: Spontaneous
  Country: US (occurrence: US)
  Receive Date: 20140524
  Receipt Date: 20140524
  Transmission Date: 20141212
  Serious: No
  Sender: FDA-Public Use
  Company Number: US-SA-2013SA115532

PATIENT
  Age: 61 Year
  Sex: Female

DRUGS (2)
  1. SOLOSTAR [Suspect]
     Indication: TYPE 2 DIABETES MELLITUS
     Dosage: START - 3 MONTHS DOSE:20 UNIT(S)
     Route: 051
  2. LANTUS SOLOSTAR [Suspect]
     Indication: TYPE 2 DIABETES MELLITUS
     Dosage: START- 3 MONTHS AGO DOSE:20 UNIT(S)
     Route: 051

REACTIONS (2)
  - Injection site injury [Unknown]
  - Feeling abnormal [Unknown]
